FAERS Safety Report 9460989 (Version 2)
Quarter: 2013Q3

REPORT INFORMATION
  Report Type: Spontaneous
  Country: US (occurrence: US)
  Receive Date: 20130816
  Receipt Date: 20130912
  Transmission Date: 20140515
  Serious: No
  Sender: FDA-Public Use
  Company Number: US-BIOGENIDEC-2013BI075363

PATIENT
  Age: 40 Year
  Sex: Female

DRUGS (2)
  1. TYSABRI [Suspect]
     Indication: MULTIPLE SCLEROSIS
     Route: 042
     Dates: start: 20120412
  2. NEUROTIN [Concomitant]
     Indication: NEURALGIA

REACTIONS (2)
  - Urinary control neurostimulator implantation [Unknown]
  - Urinary tract infection [Not Recovered/Not Resolved]
